FAERS Safety Report 4719526-6 (Version None)
Quarter: 2005Q3

REPORT INFORMATION
  Report Type: 
  Country: None (occurrence: None)
  Receive Date: 20050719
  Receipt Date: 20050719
  Transmission Date: 20060218
  Serious: Yes (Other)
  Sender: FDA-Public Use
  Company Number: None

PATIENT
  Age: 61 Year
  Sex: Male

DRUGS (1)
  1. FENTANYL [Suspect]
     Indication: PAIN MANAGEMENT
     Dates: start: 20031118, end: 20031201

REACTIONS (4)
  - ABNORMAL BEHAVIOUR [None]
  - FEELING ABNORMAL [None]
  - HALLUCINATION, VISUAL [None]
  - PSYCHOTIC DISORDER [None]
